FAERS Safety Report 24273021 (Version 1)
Quarter: 2024Q3

REPORT INFORMATION
  Report Type: Spontaneous
  Country: US (occurrence: US)
  Receive Date: 20240902
  Receipt Date: 20240902
  Transmission Date: 20241017
  Serious: No
  Sender: NOVARTIS
  Company Number: US-002147023-NVSC2024US174754

PATIENT
  Sex: Female

DRUGS (4)
  1. LETROZOLE [Suspect]
     Active Substance: LETROZOLE
     Indication: Product used for unknown indication
     Dosage: UNK
     Route: 065
  2. IBRANCE [Suspect]
     Active Substance: PALBOCICLIB
     Indication: Breast cancer metastatic
     Dosage: 75 MG, QD (FOR 3 WEEKS, THEN 1 WEEK OFF)
     Route: 048
     Dates: end: 20240808
  3. LEVOTHYROXINE [Concomitant]
     Active Substance: LEVOTHYROXINE\LEVOTHYROXINE SODIUM
     Indication: Hypothyroidism
     Dosage: 40 UG, QD
     Route: 048
     Dates: start: 1996
  4. FULVESTRANT [Concomitant]
     Active Substance: FULVESTRANT
     Indication: Chemotherapy
     Dosage: UNK UNK, QMO
     Route: 065
     Dates: end: 20240808

REACTIONS (2)
  - Osteoporosis [Unknown]
  - Tumour marker increased [Unknown]

NARRATIVE: CASE EVENT DATE: 20221104
